FAERS Safety Report 9310960 (Version 2)
Quarter: 2013Q2

REPORT INFORMATION
  Report Type: Spontaneous
  Country: US (occurrence: US)
  Receive Date: 20130528
  Receipt Date: 20130606
  Transmission Date: 20140414
  Serious: Yes (Hospitalization)
  Sender: FDA-Public Use
  Company Number: US-JNJFOC-20130509574

PATIENT
  Age: 66 Year
  Sex: Male

DRUGS (5)
  1. XARELTO [Suspect]
     Indication: CEREBROVASCULAR ACCIDENT PROPHYLAXIS
     Route: 048
     Dates: start: 201304, end: 20130510
  2. XARELTO [Suspect]
     Indication: ATRIAL FIBRILLATION
     Route: 048
     Dates: start: 201304, end: 20130510
  3. ASPIRIN [Suspect]
     Indication: PRODUCT USED FOR UNKNOWN INDICATION
     Route: 065
  4. PLAVIX [Suspect]
     Indication: PRODUCT USED FOR UNKNOWN INDICATION
     Route: 065
  5. METOPROLOL [Concomitant]
     Route: 065

REACTIONS (5)
  - Haemoglobin decreased [Unknown]
  - Gastrointestinal haemorrhage [Unknown]
  - Oesophagitis [Unknown]
  - Gastrooesophageal reflux disease [Unknown]
  - Cardioversion [Unknown]
